FAERS Safety Report 5955784-8 (Version None)
Quarter: 2008Q4

REPORT INFORMATION
  Report Type: 
  Country: None (occurrence: None)
  Receive Date: 20081117
  Receipt Date: 20081105
  Transmission Date: 20090506
  Serious: Yes (Death, Life-Threatening, Hospitalization)
  Sender: FDA-Public Use
  Company Number: FR-PFIZER INC-2008082615

PATIENT
  Sex: Male
  Weight: 70 kg

DRUGS (5)
  1. TAHOR [Suspect]
     Indication: MYOCARDIAL INFARCTION
     Dates: start: 20080818, end: 20080829
  2. TAHOR [Suspect]
     Indication: STENT PLACEMENT
  3. KARDEGIC [Concomitant]
     Indication: STENT PLACEMENT
  4. PLAVIX [Concomitant]
     Indication: STENT PLACEMENT
  5. PAROXETINE MESILATE [Concomitant]
     Indication: DEPRESSION

REACTIONS (2)
  - DEATH [None]
  - RHABDOMYOLYSIS [None]
